FAERS Safety Report 6185002-X (Version None)
Quarter: 2009Q2

REPORT INFORMATION
  Report Type: 
  Country: None (occurrence: None)
  Receive Date: 20090511
  Receipt Date: 20090318
  Transmission Date: 20091009
  Serious: No
  Sender: FDA-Public Use
  Company Number: A0774018A

PATIENT
  Age: 68 Year
  Sex: Male

DRUGS (4)
  1. COREG CR [Suspect]
     Indication: HYPERTENSION
     Dosage: 40MG PER DAY
     Route: 048
     Dates: start: 20080601
  2. DIOVAN HCT [Concomitant]
  3. LIPITOR [Concomitant]
  4. ASPIRIN [Concomitant]

REACTIONS (4)
  - BREAST ENLARGEMENT [None]
  - HYPOMETABOLISM [None]
  - OEDEMA [None]
  - WEIGHT INCREASED [None]
